FAERS Safety Report 12441752 (Version 3)
Quarter: 2018Q4

REPORT INFORMATION
  Report Type: Spontaneous
  Country: US (occurrence: US)
  Receive Date: 20160607
  Receipt Date: 20181126
  Transmission Date: 20190204
  Serious: Yes (Hospitalization, Other)
  Sender: FDA-Public Use
  Company Number: US-DSJP-DSU-2015-133818

PATIENT

DRUGS (21)
  1. ATORVASTATIN [Concomitant]
     Active Substance: ATORVASTATIN
     Indication: BLOOD CHOLESTEROL INCREASED
     Dosage: 40 MG, QD
     Dates: start: 2014, end: 2015
  2. TRITEC [Concomitant]
     Active Substance: RANITIDINE BISMUTH CITRATE
     Indication: GASTROOESOPHAGEAL REFLUX DISEASE
     Dosage: 300 MG, UNK
     Dates: start: 2012
  3. BENICAR HCT [Suspect]
     Active Substance: HYDROCHLOROTHIAZIDE\OLMESARTAN MEDOXOMIL
     Dosage: 20-12.5 MG 1/2 TABLET , QD
     Route: 048
     Dates: start: 20150610
  4. NAPROXEN                           /00256202/ [Concomitant]
     Active Substance: NAPROXEN SODIUM
     Indication: MYALGIA
     Dosage: UNK
     Dates: start: 2011
  5. ALPRAZOLAM. [Concomitant]
     Active Substance: ALPRAZOLAM
     Indication: ANXIETY
     Dosage: UNK
     Dates: start: 2013
  6. CIPRO [Concomitant]
     Active Substance: CIPROFLOXACIN HYDROCHLORIDE
     Indication: ANTIBIOTIC THERAPY
     Dosage: UNK
  7. NEXIUM [Concomitant]
     Active Substance: ESOMEPRAZOLE MAGNESIUM
     Indication: ULCER
     Dosage: 40 MG, AS NEEDED
     Dates: start: 2010
  8. SULFAMETHOXAZOLE AND TRIMETHOPRIM [Concomitant]
     Active Substance: SULFAMETHOXAZOLE\TRIMETHOPRIM
     Indication: ANTIBIOTIC THERAPY
     Dosage: 800/160 MG, UNK
  9. PREDNISONE. [Concomitant]
     Active Substance: PREDNISONE
     Indication: INFLAMMATION
     Dosage: 20 MG, UNK
  10. BENICAR [Suspect]
     Active Substance: OLMESARTAN MEDOXOMIL
     Indication: HYPERTENSION
     Dosage: 20 MG, QD
     Route: 048
     Dates: start: 20030507, end: 20150623
  11. BENICAR HCT [Suspect]
     Active Substance: HYDROCHLOROTHIAZIDE\OLMESARTAN MEDOXOMIL
     Indication: HYPERTENSION
     Dosage: 20/12.5 MG, QD
     Route: 048
  12. MULTIVITAMIN                       /00097801/ [Concomitant]
     Active Substance: VITAMINS
     Indication: SUPPLEMENTATION THERAPY
     Dosage: UNK
  13. TRAMADOL HCL [Concomitant]
     Active Substance: TRAMADOL HYDROCHLORIDE
     Indication: PAIN
     Dosage: 50 MG, UNK
  14. ZOLPIDEM [Concomitant]
     Active Substance: ZOLPIDEM\ZOLPIDEM TARTRATE
     Indication: INSOMNIA
     Dosage: 10 MG, UNK
  15. TRIBENZOR [Suspect]
     Active Substance: AMLODIPINE BESYLATE\HYDROCHLOROTHIAZIDE\OLMESARTAN MEDOXOMIL
     Indication: PRODUCT USED FOR UNKNOWN INDICATION
     Dosage: 20-5-12.5 MG  QD
     Route: 048
  16. BENICAR HCT [Suspect]
     Active Substance: HYDROCHLOROTHIAZIDE\OLMESARTAN MEDOXOMIL
     Dosage: 40-12.5 MG, QD
  17. FLOMAX [Concomitant]
     Active Substance: TAMSULOSIN HYDROCHLORIDE
     Indication: PRODUCT USED FOR UNKNOWN INDICATION
     Dosage: UNK
  18. TAMSULOSIN [Concomitant]
     Active Substance: TAMSULOSIN
     Indication: PROSTATOMEGALY
     Dosage: 0.4 MG, QD
  19. PRILOSEC [Concomitant]
     Active Substance: OMEPRAZOLE MAGNESIUM
     Indication: GASTROOESOPHAGEAL REFLUX DISEASE
     Dosage: UNK
     Dates: start: 2014
  20. HYDROCHLOROTHIAZIDE. [Concomitant]
     Active Substance: HYDROCHLOROTHIAZIDE
     Indication: HYPERTENSION
     Dosage: 25 MG, QD
     Dates: start: 2003, end: 2006
  21. MUPIROCIN. [Concomitant]
     Active Substance: MUPIROCIN
     Indication: ANTIBIOTIC THERAPY
     Dosage: ON AND OFF FOR MANY YEARS

REACTIONS (11)
  - Cholecystitis chronic [Not Recovered/Not Resolved]
  - Sprue-like enteropathy [Recovering/Resolving]
  - Chronic kidney disease [Unknown]
  - Pancreatitis chronic [Unknown]
  - Haemorrhoids [Unknown]
  - Diverticulum intestinal [Not Recovered/Not Resolved]
  - Oesophageal ulcer [Unknown]
  - Coeliac disease [Unknown]
  - Large intestine polyp [Unknown]
  - Gastrooesophageal reflux disease [Unknown]
  - Product administration error [Unknown]

NARRATIVE: CASE EVENT DATE: 2008
